FAERS Safety Report 24651711 (Version 1)
Quarter: 2024Q4

REPORT INFORMATION
  Report Type: Report from Study
  Country: US (occurrence: US)
  Receive Date: 20241122
  Receipt Date: 20241122
  Transmission Date: 20250115
  Serious: Yes (Death, Other)
  Sender: SANDOZ
  Company Number: US-SANDOZ-SDZ2024US097237

PATIENT
  Sex: Female

DRUGS (1)
  1. ZARXIO [Suspect]
     Active Substance: FILGRASTIM-SNDZ
     Indication: Lung carcinoma cell type unspecified stage 0
     Dosage: 300 UG 2 DOSE EVERY N/A N/A
     Route: 058
     Dates: start: 20240320

REACTIONS (1)
  - Death [Fatal]
